FAERS Safety Report 9214040 (Version 2)
Quarter: 2013Q2

REPORT INFORMATION
  Report Type: Spontaneous
  Country: FR (occurrence: FR)
  Receive Date: 20130405
  Receipt Date: 20130626
  Transmission Date: 20140414
  Serious: Yes (Other)
  Sender: FDA-Public Use
  Company Number: FR-PFIZER INC-2013102837

PATIENT
  Age: 20 Year
  Sex: Female
  Weight: 47 kg

DRUGS (4)
  1. XALKORI [Suspect]
     Indication: INFLAMMATORY MYOFIBROBLASTIC TUMOUR
     Dosage: UNK
     Dates: start: 201202, end: 2012
  2. XALKORI [Suspect]
     Dosage: 250 MG, 2X/DAY
  3. XALKORI [Suspect]
     Dosage: UNK
     Dates: end: 20120330
  4. XALKORI [Suspect]
     Dosage: UNK
     Dates: start: 20130525

REACTIONS (4)
  - Off label use [Unknown]
  - Convulsion [Unknown]
  - Disease progression [Unknown]
  - Inflammatory myofibroblastic tumour [Unknown]
